FAERS Safety Report 12124277 (Version 1)
Quarter: 2016Q1

REPORT INFORMATION
  Report Type: Spontaneous
  Country: US (occurrence: US)
  Receive Date: 20160229
  Receipt Date: 20160229
  Transmission Date: 20160526
  Serious: No
  Sender: FDA-Public Use
  Company Number: US-MYLANLABS-2015M1026821

PATIENT
  Age: 67 Year
  Sex: Female

DRUGS (2)
  1. TRIAMTERENE AND HYDROCHLOROTHIAZIDE [Suspect]
     Active Substance: HYDROCHLOROTHIAZIDE\TRIAMTERENE
     Indication: BLOOD PRESSURE MEASUREMENT
     Dosage: 37.5/25 MG, QD
     Route: 048
     Dates: start: 2011
  2. ATENOLOL TABLETS, USP [Suspect]
     Active Substance: ATENOLOL
     Indication: BLOOD PRESSURE MEASUREMENT
     Dosage: 25 MG, QD
     Route: 048
     Dates: start: 20150701, end: 20150704

REACTIONS (7)
  - Cardiac disorder [Recovered/Resolved]
  - Weight increased [Not Recovered/Not Resolved]
  - Tinnitus [Recovered/Resolved]
  - Drug interaction [Recovered/Resolved]
  - Fluid retention [Recovered/Resolved]
  - Drug ineffective [Recovered/Resolved]
  - Ear pain [Recovered/Resolved]

NARRATIVE: CASE EVENT DATE: 2015
